FAERS Safety Report 8408695 (Version 2)
Quarter: 2013Q2

REPORT INFORMATION
  Report Type: Spontaneous
  Country: US (occurrence: None)
  Receive Date: 20111227
  Receipt Date: 20120703
  Transmission Date: 20140414
  Serious: Yes (Other)
  Sender: FDA-Public Use
  Company Number: PHEH2011US07756

PATIENT
  Age: 55 Year
  Sex: Female

DRUGS (11)
  1. GILENYA [Suspect]
     Indication: MULTIPLE SCLEROSIS
     Dosage: 0.5 MG, DAILY, ORAL
     Route: 048
     Dates: start: 20101223
  2. GABAPENTIN (GABAPENTIN) [Concomitant]
  3. BENICAR [Concomitant]
  4. OXYCODONE (OXYCODONE) [Concomitant]
  5. ACETAMINOPHEN (PARACETAMOL) [Concomitant]
  6. SERTRALINE HYDROCHLORIDE [Concomitant]
  7. TRAMADIN (TRAMADOL HYDROCHLORIDE) [Concomitant]
  8. DIAZEPAM (DIAZEPAM) [Concomitant]
  9. ZOLOFT (SERTRALINE HYDROCHLORIDE) [Concomitant]
  10. LIPITOR (ATORVASTATIN CALCIUM) [Concomitant]
  11. NEURONTIN (GABAPENTIN) [Concomitant]

REACTIONS (7)
  - URTICARIA [None]
  - DYSPNOEA [None]
  - DIPLOPIA [None]
  - BLEPHAROSPASM [None]
  - VISUAL IMPAIRMENT [None]
  - ALOPECIA [None]
  - BACK PAIN [None]
